FAERS Safety Report 8374890-4 (Version None)
Quarter: 2012Q2

REPORT INFORMATION
  Report Type: 
  Country: None (occurrence: None)
  Receive Date: 20120521
  Receipt Date: 20120414
  Transmission Date: 20120825
  Serious: No
  Sender: FDA-Public Use
  Company Number: US-PFIZER INC-2012120163

PATIENT

DRUGS (1)
  1. GABAPENTIN [Suspect]
     Indication: PAIN
     Dosage: 1800 MG, DAILY

REACTIONS (3)
  - DRUG INEFFECTIVE [None]
  - INCREASED APPETITE [None]
  - WEIGHT INCREASED [None]
